FAERS Safety Report 6866929-X (Version None)
Quarter: 2010Q2

REPORT INFORMATION
  Report Type: 
  Country: None (occurrence: None)
  Receive Date: 20100610
  Receipt Date: 20100106
  Transmission Date: 20101027
  Serious: No
  Sender: FDA-Public Use
  Company Number: 2010SP001807

PATIENT
  Age: 30 Year
  Sex: Male

DRUGS (5)
  1. SAPHRIS [Suspect]
     Indication: PARANOIA
     Dosage: 5 MG; BID; SL
     Route: 060
     Dates: start: 20091222
  2. SAPHRIS [Suspect]
     Indication: SCHIZOPHRENIA
     Dosage: 5 MG; BID; SL
     Route: 060
     Dates: start: 20091222
  3. CLOZARIL [Concomitant]
  4. LEXAPRO [Concomitant]
  5. ZYPREXA [Concomitant]

REACTIONS (2)
  - NEUTROPHIL COUNT DECREASED [None]
  - THROMBOCYTOPENIA [None]
